FAERS Safety Report 5338638-X (Version None)
Quarter: 2007Q2

REPORT INFORMATION
  Report Type: 
  Country: None (occurrence: None)
  Receive Date: 20070322
  Receipt Date: 20060503
  Transmission Date: 20071010
  Serious: Yes (Other)
  Sender: FDA-Public Use
  Company Number: 200611212BCC

PATIENT
  Age: 74 Year
  Sex: Female
  Weight: 77.1115 kg

DRUGS (1)
  1. ALEVE [Suspect]
     Indication: ARTHRALGIA
     Dosage: 220 MG, ONCE, ORAL
     Route: 048
     Dates: start: 20060319

REACTIONS (10)
  - ANAPHYLACTIC SHOCK [None]
  - CHEST DISCOMFORT [None]
  - DEPRESSION [None]
  - DYSPHAGIA [None]
  - FATIGUE [None]
  - HYPERSENSITIVITY [None]
  - MALAISE [None]
  - NERVOUSNESS [None]
  - PARAESTHESIA [None]
  - UNEVALUABLE EVENT [None]
